FAERS Safety Report 24322311 (Version 1)
Quarter: 2024Q3

REPORT INFORMATION
  Report Type: Spontaneous
  Country: AU (occurrence: AU)
  Receive Date: 20240916
  Receipt Date: 20240916
  Transmission Date: 20241017
  Serious: Yes (Hospitalization)
  Sender: ABBVIE
  Company Number: AU-PFIZER INC-202400247647

PATIENT
  Age: 55 Year
  Sex: Male
  Weight: 77 kg

DRUGS (5)
  1. CEFTAROLINE FOSAMIL [Suspect]
     Active Substance: CEFTAROLINE FOSAMIL
     Indication: Antibiotic therapy
     Dosage: TIME INTERVAL: 0.33333333 DAYS: 600 MG, 3X/DAY (ARTG: 192260)
     Route: 042
     Dates: start: 20240823, end: 20240830
  2. CLINDAMYCIN [Concomitant]
     Active Substance: CLINDAMYCIN
     Indication: Infection
     Dosage: TIME INTERVAL: 0.33333333 DAYS: 450 MG, 3X/DAY
     Dates: start: 20240830
  3. MIDAZOLAM [Concomitant]
     Active Substance: MIDAZOLAM
     Indication: Product used for unknown indication
     Dosage: 2 MG, SINGLE (REASON FOR TAKING: PRE-SCENE, UNIT: VIAL, FREQUENCY: STAT)
     Route: 042
  4. TAPENTADOL [Concomitant]
     Active Substance: TAPENTADOL
     Indication: Pain
     Dosage: TIME INTERVAL: 0.33333333 DAYS: 50 MG, 3X/DAY
  5. CELECOXIB [Concomitant]
     Active Substance: CELECOXIB
     Indication: Pain
     Dosage: 100 MG, 2X/DAY

REACTIONS (3)
  - Type IV hypersensitivity reaction [Recovering/Resolving]
  - Pyrexia [Recovering/Resolving]
  - Rash [Recovering/Resolving]

NARRATIVE: CASE EVENT DATE: 20240830
